FAERS Safety Report 10303022 (Version 1)
Quarter: 2014Q3

REPORT INFORMATION
  Report Type: Spontaneous
  Country: US (occurrence: None)
  Receive Date: 20140710
  Receipt Date: 20140710
  Transmission Date: 20150326
  Serious: Yes (Death)
  Sender: FDA-Public Use
  Company Number: POI0573201400057

PATIENT
  Age: 38 Year
  Sex: Female

DRUGS (6)
  1. NIFEDIPINE EXTENDED-RELEASE TABLETS, USP [Suspect]
     Active Substance: NIFEDIPINE
     Indication: HYPERTENSION
     Dosage: 90 MG (90 MG, TWICE), NASOGASTRIC
     Route: 048
     Dates: start: 2003, end: 2003
  2. METOPROLOL [Concomitant]
     Active Substance: METOPROLOL
  3. FUROSEMIDE. [Concomitant]
     Active Substance: FUROSEMIDE
  4. CLONIDINE. [Concomitant]
     Active Substance: CLONIDINE
  5. HYDRALAZINE [Concomitant]
     Active Substance: HYDRALAZINE HYDROCHLORIDE
  6. LABETALOL [Suspect]
     Active Substance: LABETALOL\LABETALOL HYDROCHLORIDE
     Indication: HYPERTENSION
     Dosage: 1200 MG (600 MG, 2 IN 1 D), NASOGASTRIC
     Route: 048
     Dates: start: 2003, end: 2003

REACTIONS (24)
  - Tachycardia [None]
  - Blood pressure increased [None]
  - Rales [None]
  - Headache [None]
  - General physical health deterioration [None]
  - Mucosal dryness [None]
  - Lung infiltration [None]
  - Pneumonia [None]
  - Refusal of treatment by patient [None]
  - Drug administration error [None]
  - Oxygen saturation decreased [None]
  - Convulsion [None]
  - Respiratory rate increased [None]
  - Oedema [None]
  - Nodal arrhythmia [None]
  - Anxiety [None]
  - Hyperhidrosis [None]
  - Cardiac arrest [None]
  - Wheezing [None]
  - Pulmonary oedema [None]
  - Hypotension [None]
  - Wrong technique in drug usage process [None]
  - Dyspnoea [None]
  - Jugular vein distension [None]

NARRATIVE: CASE EVENT DATE: 200310
